FAERS Safety Report 7303871-4 (Version None)
Quarter: 2011Q1

REPORT INFORMATION
  Report Type: 
  Country: None (occurrence: None)
  Receive Date: 20110221
  Receipt Date: 20110218
  Transmission Date: 20110831
  Serious: Yes (Hospitalization)
  Sender: FDA-Public Use
  Company Number: B0695360A

PATIENT
  Sex: Female

DRUGS (13)
  1. FLOLAN [Suspect]
     Indication: PULMONARY ARTERIAL HYPERTENSION
     Route: 042
     Dates: start: 20101001
  2. HUMIRA [Suspect]
     Dosage: 40MG EVERY TWO WEEKS
     Route: 058
     Dates: start: 20090101
  3. ACETAMINOPHEN [Concomitant]
     Route: 048
  4. ALUMINUM HYDROXIDE AND MAGNESIUM TRISILICATE [Concomitant]
     Dosage: 1SAC THREE TIMES PER DAY
     Route: 048
  5. FUROSEMIDE [Concomitant]
     Dosage: 120MG PER DAY
     Route: 048
  6. PREVISCAN [Concomitant]
     Indication: PULMONARY ARTERIAL HYPERTENSION
     Dosage: 5MG PER DAY
     Route: 048
     Dates: start: 20070301
  7. INSPRA [Concomitant]
     Dosage: 25MG PER DAY
     Route: 048
  8. BETNEVAL [Concomitant]
     Route: 061
  9. SITAXSENTAN [Concomitant]
     Indication: PULMONARY ARTERIAL HYPERTENSION
     Route: 048
     Dates: end: 20101201
  10. EUPANTOL [Concomitant]
     Dosage: 20MG PER DAY
     Route: 048
  11. VOLIBRIS [Suspect]
     Indication: PULMONARY ARTERIAL HYPERTENSION
     Dosage: 5MG PER DAY
     Route: 048
     Dates: start: 20101201
  12. ATARAX [Concomitant]
     Dosage: 25MG PER DAY
     Route: 048
  13. HEMIGOXINE [Concomitant]
     Dosage: 1TAB PER DAY
     Route: 048

REACTIONS (7)
  - THROMBOCYTOPENIA [None]
  - WEIGHT INCREASED [None]
  - NAUSEA [None]
  - DECREASED APPETITE [None]
  - VOMITING [None]
  - OEDEMA PERIPHERAL [None]
  - DYSPNOEA [None]
